FAERS Safety Report 6187516-5 (Version None)
Quarter: 2009Q2

REPORT INFORMATION
  Report Type: 
  Country: None (occurrence: None)
  Receive Date: 20090508
  Receipt Date: 20090429
  Transmission Date: 20091009
  Serious: Yes (Hospitalization)
  Sender: FDA-Public Use
  Company Number: 680004M09FRA

PATIENT
  Age: 25 Year
  Sex: Female

DRUGS (4)
  1. PERGOVERIS (FIXED COMBINATION OF R-HFSH AND R-HLH) [Suspect]
     Indication: INFERTILITY FEMALE
     Dosage: 150 IU
  2. OVITRELLE (CHORIOGONADOTROPIN ALFA) [Suspect]
     Indication: INFERTILITY FEMALE
  3. CLOMID [Suspect]
     Indication: OVULATION INDUCTION
  4. UTROGESTAN (PROGESTERONE) [Concomitant]

REACTIONS (6)
  - ABORTION SPONTANEOUS [None]
  - ASCITES [None]
  - DRUG EXPOSURE BEFORE PREGNANCY [None]
  - OVARIAN HYPERSTIMULATION SYNDROME [None]
  - PLEURAL EFFUSION [None]
  - RUPTURED ECTOPIC PREGNANCY [None]
